FAERS Safety Report 13351239 (Version 1)
Quarter: 2017Q1

REPORT INFORMATION
  Report Type: Spontaneous
  Country: AU (occurrence: AU)
  Receive Date: 20170320
  Receipt Date: 20170320
  Transmission Date: 20170429
  Serious: Yes (Death)
  Sender: FDA-Public Use
  Company Number: AU-ETHYPHARM USA CORP-EY-BP-AU-2017-004

PATIENT
  Age: 92 Year
  Sex: Female

DRUGS (4)
  1. BUPRENORPHINE HYDROCHLORIDE. [Suspect]
     Active Substance: BUPRENORPHINE HYDROCHLORIDE
     Indication: BREAKTHROUGH PAIN
     Route: 060
  2. IBUPROFEN. [Suspect]
     Active Substance: IBUPROFEN
     Indication: ANALGESIC THERAPY
  3. NALOXONE [Concomitant]
     Active Substance: NALOXONE
     Route: 040
  4. CODEINE [Suspect]
     Active Substance: CODEINE
     Indication: ANALGESIC THERAPY
     Dosage: 1 G/60 MG

REACTIONS (4)
  - Depressed level of consciousness [Fatal]
  - Pneumonia aspiration [Fatal]
  - Respiratory depression [Fatal]
  - Off label use [Fatal]
